FAERS Safety Report 10430634 (Version 8)
Quarter: 2015Q1

REPORT INFORMATION
  Report Type: Report from Study
  Country: US (occurrence: US)
  Receive Date: 20140904
  Receipt Date: 20150202
  Transmission Date: 20150720
  Serious: Yes (Hospitalization, Other)
  Sender: FDA-Public Use
  Company Number: US-ALEXION PHARMACEUTICALS INC-A201403365

PATIENT

DRUGS (2)
  1. SOLIRIS [Suspect]
     Active Substance: ECULIZUMAB
     Indication: PRODUCT USED FOR UNKNOWN INDICATION
     Dosage: UNK
     Route: 042
  2. STEROID [Concomitant]
     Active Substance: UNSPECIFIED INGREDIENT
     Indication: PRODUCT USED FOR UNKNOWN INDICATION
     Dosage: UNK
     Route: 065

REACTIONS (21)
  - Haptoglobin decreased [Unknown]
  - Blood creatinine increased [Unknown]
  - Musculoskeletal pain [Unknown]
  - Arthralgia [Unknown]
  - Haemoglobin decreased [Not Recovered/Not Resolved]
  - Back pain [Unknown]
  - Unevaluable event [Unknown]
  - Hypertension [Recovered/Resolved]
  - Red blood cell count decreased [Unknown]
  - Heart rate increased [Unknown]
  - Endothelial dysfunction [Unknown]
  - Fatigue [Recovering/Resolving]
  - Blood pressure increased [Unknown]
  - Blood lactate dehydrogenase increased [Unknown]
  - White blood cell count decreased [Unknown]
  - Blood urea increased [Unknown]
  - Encephalopathy [Recovering/Resolving]
  - Cholelithiasis [Unknown]
  - Gallbladder disorder [Unknown]
  - Haematocrit decreased [Unknown]
  - Cough [Unknown]

NARRATIVE: CASE EVENT DATE: 20150103
